FAERS Safety Report 19277393 (Version 1)
Quarter: 2021Q2

REPORT INFORMATION
  Report Type: Spontaneous
  Country: US (occurrence: US)
  Receive Date: 20210520
  Receipt Date: 20210520
  Transmission Date: 20210717
  Serious: No
  Sender: FDA-Public Use
  Company Number: US-PINNACLE BIOLOGICS INC-2021-CLI-000007

PATIENT

DRUGS (1)
  1. PHOTOFRIN [Suspect]
     Active Substance: PORFIMER SODIUM
     Indication: PRODUCT USED FOR UNKNOWN INDICATION
     Dosage: UNK
     Dates: start: 20210423

REACTIONS (1)
  - Headache [Unknown]

NARRATIVE: CASE EVENT DATE: 20210423
